FAERS Safety Report 21166040 (Version 2)
Quarter: 2022Q3

REPORT INFORMATION
  Report Type: Spontaneous
  Country: US (occurrence: US)
  Receive Date: 20220803
  Receipt Date: 20220816
  Transmission Date: 20221027
  Serious: Yes (Hospitalization, Other)
  Sender: FDA-Public Use
  Company Number: US-TORRENT-00011948

PATIENT
  Age: 63 Year
  Sex: Male
  Weight: 102 kg

DRUGS (13)
  1. TRAZODONE [Interacting]
     Active Substance: TRAZODONE HYDROCHLORIDE
     Indication: Depression
     Dosage: 50 MG PO QHS (TAKES 50-?150 MG QHS)
     Route: 048
  2. DESVENLAFAXINE [Interacting]
     Active Substance: DESVENLAFAXINE
     Indication: Depression
     Dosage: 100 MG XR PO DAILY
     Route: 048
  3. BUPROPION [Interacting]
     Active Substance: BUPROPION
     Indication: Depression
     Dosage: 150 MG XL PO DAILY
     Route: 048
  4. BUSPIRONE [Interacting]
     Active Substance: BUSPIRONE HYDROCHLORIDE
     Indication: Depression
     Dosage: 30 MG PO BID
     Route: 048
  5. ZIPRASIDONE [Interacting]
     Active Substance: ZIPRASIDONE
     Indication: Depression
     Route: 048
  6. AMLODIPINE [Concomitant]
     Active Substance: AMLODIPINE BESYLATE
     Indication: Product used for unknown indication
     Route: 048
  7. DICLOFENAC [Concomitant]
     Active Substance: DICLOFENAC
     Indication: Product used for unknown indication
     Dosage: 75 MG DR PO BID
     Route: 048
  8. GABAPENTIN [Concomitant]
     Active Substance: GABAPENTIN
     Indication: Product used for unknown indication
     Dosage: 800 MG PO QHS
     Route: 048
  9. GLIMEPIRIDE [Concomitant]
     Active Substance: GLIMEPIRIDE
     Indication: Product used for unknown indication
     Dosage: 4 MG PO DAILY
     Route: 048
  10. HYDROCHLOROTHIAZIDE [Concomitant]
     Active Substance: HYDROCHLOROTHIAZIDE
     Indication: Product used for unknown indication
     Dosage: 25 MG PO DAILY
     Route: 048
  11. METFORMIN [Concomitant]
     Active Substance: METFORMIN HYDROCHLORIDE
     Indication: Product used for unknown indication
     Dosage: 500 MG XR QHS
     Route: 065
  12. OMEPRAZOLE [Concomitant]
     Active Substance: OMEPRAZOLE
     Indication: Product used for unknown indication
     Dosage: 40 MG PO DAILY
     Route: 048
  13. TIZANIDINE HYDROCHLORIDE [Concomitant]
     Active Substance: TIZANIDINE HYDROCHLORIDE
     Indication: Product used for unknown indication
     Dosage: PRN
     Route: 048

REACTIONS (4)
  - Serotonin syndrome [Recovered/Resolved]
  - Drug interaction [Unknown]
  - Ischaemic stroke [Unknown]
  - Meningitis bacterial [Unknown]
